FAERS Safety Report 10026082 (Version 2)
Quarter: 2014Q1

REPORT INFORMATION
  Report Type: Spontaneous
  Country: US (occurrence: US)
  Receive Date: 20140320
  Receipt Date: 20140320
  Transmission Date: 20141002
  Serious: Yes (Disabling)
  Sender: FDA-Public Use
  Company Number: US-GE HEALTHCARE MEDICAL DIAGNOSTICS-OSCN-PR-0806S-0329

PATIENT
  Age: 34 Year
  Sex: Male
  Weight: 81 kg

DRUGS (13)
  1. OMNISCAN [Suspect]
     Indication: PRODUCT USED FOR UNKNOWN INDICATION
     Route: 042
     Dates: start: 20040413, end: 20040413
  2. OMNISCAN [Suspect]
     Route: 042
     Dates: start: 20040526, end: 20040526
  3. OMNISCAN [Suspect]
     Route: 042
     Dates: start: 20041107, end: 20041107
  4. OMNISCAN [Suspect]
     Route: 042
     Dates: start: 20041110, end: 20041110
  5. MAGNEVIST [Suspect]
     Indication: PRODUCT USED FOR UNKNOWN INDICATION
     Route: 042
     Dates: start: 20030609, end: 20030609
  6. MAGNEVIST [Suspect]
     Route: 042
     Dates: start: 20030612, end: 20030612
  7. MAGNEVIST [Suspect]
     Route: 042
     Dates: start: 20040413, end: 20040413
  8. MAGNEVIST [Suspect]
     Route: 042
     Dates: start: 20041107, end: 20041107
  9. MAGNEVIST [Suspect]
     Route: 042
     Dates: start: 20041110, end: 20041110
  10. MAGNEVIST [Suspect]
     Route: 042
     Dates: start: 20050906, end: 20050906
  11. EPOGEN [Concomitant]
  12. RENAGEL [Concomitant]
  13. ATENOLOL [Concomitant]

REACTIONS (1)
  - Nephrogenic systemic fibrosis [Not Recovered/Not Resolved]
